FAERS Safety Report 14015915 (Version 1)
Quarter: 2017Q3

REPORT INFORMATION
  Report Type: Report from Study
  Country: US (occurrence: US)
  Receive Date: 20170927
  Receipt Date: 20170927
  Transmission Date: 20171128
  Serious: Yes (Death)
  Sender: FDA-Public Use
  Company Number: US-PFIZER INC-2017415128

PATIENT
  Age: 33 Year
  Sex: Male

DRUGS (1)
  1. SODIUM BICARBONATE. [Suspect]
     Active Substance: SODIUM BICARBONATE
     Dosage: UNK

REACTIONS (5)
  - Hypotension [Fatal]
  - Toxicity to various agents [Fatal]
  - Respiratory depression [Fatal]
  - Acute kidney injury [Fatal]
  - Seizure [Fatal]
